FAERS Safety Report 21128238 (Version 1)
Quarter: 2022Q3

REPORT INFORMATION
  Report Type: Spontaneous
  Country: BR (occurrence: BR)
  Receive Date: 20220725
  Receipt Date: 20220725
  Transmission Date: 20221026
  Serious: Yes (Hospitalization, Other)
  Sender: FDA-Public Use
  Company Number: BR-UCBSA-2022041427

PATIENT
  Age: 3 Year
  Sex: Female

DRUGS (1)
  1. KEPPRA [Suspect]
     Active Substance: LEVETIRACETAM
     Indication: Epilepsy
     Dosage: 200 MILLIGRAM (100 MG/ML), 2X/DAY (BID)
     Route: 048
     Dates: start: 20220708

REACTIONS (1)
  - Body temperature decreased [Recovering/Resolving]

NARRATIVE: CASE EVENT DATE: 20220708
